FAERS Safety Report 5028020-7 (Version None)
Quarter: 2006Q2

REPORT INFORMATION
  Report Type: 
  Country: None (occurrence: None)
  Receive Date: 20060612
  Receipt Date: 20060508
  Transmission Date: 20061013
  Serious: Yes (Hospitalization)
  Sender: FDA-Public Use
  Company Number: 226015

PATIENT
  Age: 48 Year
  Sex: Male
  Weight: 100 kg

DRUGS (9)
  1. MABTHERA(RITUXIMAB) CONC FOR SOLUTION FOR INFUSION [Suspect]
     Indication: LYMPHOMA
     Dosage: 375 MG/M2, Q3X, INTRAVENOUS
     Route: 042
     Dates: start: 20051129, end: 20060323
  2. ADRIAMYCIN PFS [Suspect]
     Indication: LYMPHOMA
     Dosage: 50 MG/M2, Q3W, INTRAVENOUS
     Route: 042
     Dates: start: 20051129, end: 20060323
  3. CYCLOPHOSPHAMIDE [Suspect]
     Indication: LYMPHOMA
     Dosage: 750 MG/M2, Q3W, INTRAVENOUS
     Route: 042
     Dates: start: 20051129, end: 20060323
  4. VINCRISTINE [Suspect]
     Indication: LYMPHOMA
     Dosage: 1.4 MG/M2, Q3W, INTRAVENOUS
     Route: 042
     Dates: start: 20051129, end: 20060323
  5. PREDNISONE TAB [Suspect]
     Indication: LYMPHOMA
     Dosage: 100 MG/M2, QDX5D/21DC, INTRAVENOUS
     Route: 042
     Dates: start: 20051129, end: 20060323
  6. KYTRIL [Concomitant]
  7. SOLU MODERIN (METHYLPREDNISOLONE SODIUM SUCCINATE) [Concomitant]
  8. POLARAMINE [Concomitant]
  9. PROFENAL (SUPROFEN) [Concomitant]

REACTIONS (1)
  - FEBRILE NEUTROPENIA [None]
